FAERS Safety Report 21530237 (Version 1)
Quarter: 2022Q4

REPORT INFORMATION
  Report Type: Spontaneous
  Country: US (occurrence: None)
  Receive Date: 20221028
  Receipt Date: 20221028
  Transmission Date: 20230113
  Serious: No
  Sender: FDA-Public Use
  Company Number: None

PATIENT
  Age: 6 Year
  Sex: Female
  Weight: 21.77 kg

DRUGS (1)
  1. XELJANZ [Suspect]
     Active Substance: TOFACITINIB CITRATE
     Indication: Juvenile idiopathic arthritis
     Dosage: FREQUENCY : TWICE A DAY;?
     Route: 048
     Dates: start: 202204

REACTIONS (4)
  - Pharyngitis streptococcal [None]
  - Therapy interrupted [None]
  - Pain in extremity [None]
  - Pain in extremity [None]
